FAERS Safety Report 21663778 (Version 3)
Quarter: 2022Q4

REPORT INFORMATION
  Report Type: Spontaneous
  Country: DE (occurrence: DE)
  Receive Date: 20221130
  Receipt Date: 20221222
  Transmission Date: 20230113
  Serious: Yes (Hospitalization, Other)
  Sender: FDA-Public Use
  Company Number: DE-SA-SAC20221128000669

PATIENT
  Age: 39 Year
  Sex: Female

DRUGS (18)
  1. AUBAGIO [Suspect]
     Active Substance: TERIFLUNOMIDE
     Indication: Multiple sclerosis
     Dosage: 14 MG, QD
     Route: 048
     Dates: start: 20131022, end: 201610
  2. COPAXONE [Suspect]
     Active Substance: GLATIRAMER ACETATE
     Dosage: UNK
  3. TYSABRI [Suspect]
     Active Substance: NATALIZUMAB
     Dosage: UNK
  4. ZINBRYTA [Suspect]
     Active Substance: DACLIZUMAB
     Dosage: UNK
  5. GILENYA [Suspect]
     Active Substance: FINGOLIMOD HYDROCHLORIDE
     Dosage: UNK
  6. METHYLPREDNISOLONE [Concomitant]
     Active Substance: METHYLPREDNISOLONE
  7. ALEMTUZUMAB [Concomitant]
     Active Substance: ALEMTUZUMAB
  8. REBIF [Concomitant]
     Active Substance: INTERFERON BETA-1A
  9. GABAPENTIN [Concomitant]
     Active Substance: GABAPENTIN
     Dosage: 100 MG
     Route: 048
  10. IBU [Concomitant]
     Active Substance: IBUPROFEN
     Dosage: 60 MG
     Route: 048
  11. PROPIVERIN HEXAL [Concomitant]
     Dosage: UNK
  12. CHOLECALCIFEROL [Concomitant]
     Active Substance: CHOLECALCIFEROL
     Dosage: UNK
  13. GABAPENTIN [Concomitant]
     Active Substance: GABAPENTIN
     Dosage: UNK
  14. PANTOPRAZOLE [Concomitant]
     Active Substance: PANTOPRAZOLE
     Dosage: UNK
  15. FOLIC ACID [Concomitant]
     Active Substance: FOLIC ACID
     Dosage: UNK
  16. METHYLPREDNISOLONE [Concomitant]
     Active Substance: METHYLPREDNISOLONE
     Dosage: UNK
     Dates: start: 20161004, end: 20161008
  17. MICTONORM UNO [Concomitant]
     Dosage: UNK
     Dates: start: 20160510
  18. POLYETHYLENE GLYCOLS [Concomitant]
     Active Substance: POLYETHYLENE GLYCOLS
     Dosage: UNK UNK, Q3D

REACTIONS (20)
  - Neurogenic bladder [Unknown]
  - Multiple sclerosis relapse [Unknown]
  - Hypokalaemia [Unknown]
  - Quadriparesis [Unknown]
  - Hypoaesthesia [Unknown]
  - Ataxia [Unknown]
  - Depression [Unknown]
  - Insomnia [Unknown]
  - Fatigue [Unknown]
  - Bone marrow disorder [Unknown]
  - Folate deficiency [Unknown]
  - Persistent depressive disorder [Unknown]
  - Muscle spasticity [Unknown]
  - Pain [Unknown]
  - Gastritis [Unknown]
  - Gait disturbance [Unknown]
  - General physical health deterioration [Unknown]
  - Lhermitte^s sign [Unknown]
  - Motor dysfunction [Unknown]
  - Drug ineffective [Unknown]

NARRATIVE: CASE EVENT DATE: 20160101
